FAERS Safety Report 9024946 (Version 1)
Quarter: 2013Q1

REPORT INFORMATION
  Report Type: Spontaneous
  Country: US (occurrence: None)
  Receive Date: 20121231
  Receipt Date: 20121231
  Transmission Date: 20140127
  Serious: Yes (Hospitalization)
  Sender: FDA-Public Use
  Company Number: ACO_33502_2012

PATIENT
  Age: 66 Year
  Sex: Female
  Weight: 72.6 kg

DRUGS (13)
  1. AMPYRA (DALFAMPRIDINE) TABLET, 10 MG [Suspect]
     Indication: PRODUCT USED FOR UNKNOWN INDICATION
     Route: 048
  2. PRINIVIL (LISINOPRIL DIHYDRATE) [Concomitant]
  3. AVANDAMET (METFORMIN HYDROCHLORIDE, ROSIGLITAZONE MALEATE) [Concomitant]
  4. PROTONIX (PANTOPRAZOLE SODIUM SESQUIHYDRATE) [Concomitant]
  5. SOLU-MEDROL (METHYLPREDNISOLONE SODIUM SUCCINATE) [Concomitant]
  6. AMBIEN (ZOLPIDEM TARTRATE) [Concomitant]
  7. ZOLOFT (SERTRALINE HYDROCHLORIDE) [Concomitant]
  8. NITROFURANTOIN [Concomitant]
  9. VITAMIN D (COLECALCIFEROL) [Concomitant]
  10. MAGNESIUM (MAGNESIUM) [Concomitant]
  11. CALCIUM (CALCIUM) [Concomitant]
  12. ZINC (ZINC) [Concomitant]
  13. VESICARE (SOLIFENACIN SUCCINATE) [Concomitant]

REACTIONS (3)
  - Diabetic complication [None]
  - Blister [None]
  - Toe amputation [None]
